FAERS Safety Report 13009092 (Version 4)
Quarter: 2017Q2

REPORT INFORMATION
  Report Type: Spontaneous
  Country: US (occurrence: US)
  Receive Date: 20161208
  Receipt Date: 20170501
  Transmission Date: 20170830
  Serious: No
  Sender: FDA-Public Use
  Company Number: US-ACTELION-A-NJ2016-146640

PATIENT
  Age: 83 Year
  Sex: Female
  Weight: 106.58 kg

DRUGS (2)
  1. ADEMPAS [Concomitant]
     Active Substance: RIOCIGUAT
  2. OPSUMIT [Suspect]
     Active Substance: MACITENTAN
     Indication: PULMONARY HYPERTENSION
     Dosage: 10 MG, QD
     Route: 048
     Dates: start: 20160719, end: 20170404

REACTIONS (10)
  - Decreased appetite [Unknown]
  - Sinusitis [Unknown]
  - Ligament sprain [Unknown]
  - Ear congestion [Unknown]
  - Palpitations [Unknown]
  - Dyspnoea [Unknown]
  - Nausea [Unknown]
  - Nasal congestion [Unknown]
  - Dyspepsia [Unknown]
  - Fall [Unknown]

NARRATIVE: CASE EVENT DATE: 201611
